FAERS Safety Report 6815425-4 (Version None)
Quarter: 2010Q3

REPORT INFORMATION
  Report Type: 
  Country: None (occurrence: None)
  Receive Date: 20100702
  Receipt Date: 20100623
  Transmission Date: 20110219
  Serious: Yes (Other)
  Sender: FDA-Public Use
  Company Number: US-JNJFOC-20100607405

PATIENT
  Sex: Male
  Weight: 9.53 kg

DRUGS (10)
  1. CONCENTRATED TYLENOL INFANT DROPS [Suspect]
     Route: 048
  2. CONCENTRATED TYLENOL INFANT DROPS [Suspect]
     Indication: PYREXIA
     Route: 048
  3. TOPAMAX [Concomitant]
  4. PHENOBARBITAL [Concomitant]
  5. DIAZEPAM [Concomitant]
  6. CARAFATE [Concomitant]
  7. ATIVAN [Concomitant]
  8. DELSYM [Concomitant]
  9. ZANTAC [Concomitant]
  10. SODIUM BENZOATE [Concomitant]

REACTIONS (3)
  - CONVULSION [None]
  - DRUG INEFFECTIVE [None]
  - PRODUCT QUALITY ISSUE [None]
